FAERS Safety Report 7391457-5 (Version None)
Quarter: 2011Q2

REPORT INFORMATION
  Report Type: 
  Country: None (occurrence: None)
  Receive Date: 20110404
  Receipt Date: 20101012
  Transmission Date: 20111010
  Serious: Yes (Hospitalization, Other)
  Sender: FDA-Public Use
  Company Number: US-BAYER-201028698NA

PATIENT
  Sex: Female
  Weight: 72.562 kg

DRUGS (5)
  1. YASMIN [Suspect]
     Indication: PREMENSTRUAL SYNDROME
     Route: 048
  2. YAZ [Suspect]
     Indication: PREMENSTRUAL SYNDROME
     Route: 048
  3. YAZ [Suspect]
  4. YASMIN [Suspect]
  5. NEXIUM [Concomitant]

REACTIONS (4)
  - CHOLECYSTITIS [None]
  - GALLBLADDER INJURY [None]
  - CHOLELITHIASIS [None]
  - DEEP VEIN THROMBOSIS [None]
